FAERS Safety Report 8841060 (Version 1)
Quarter: 2012Q4

REPORT INFORMATION
  Report Type: 
  Country: AT (occurrence: AT)
  Receive Date: 20121015
  Receipt Date: 20121015
  Transmission Date: 20130627
  Serious: Yes (Hospitalization, Other)
  Sender: FDA-Public Use
  Company Number: AT-ELI_LILLY_AND_COMPANY-AT201210001489

PATIENT
  Age: 57 Year
  Sex: Female

DRUGS (18)
  1. OLANZAPINE [Suspect]
     Indication: PSYCHOTIC DISORDER
     Dosage: 10 mg, UNK
     Route: 048
     Dates: start: 20120710, end: 20120710
  2. OLANZAPINE [Suspect]
     Dosage: 15 mg, UNK
     Route: 048
     Dates: start: 20120711, end: 20120819
  3. OLANZAPINE [Suspect]
     Dosage: 10 mg, UNK
     Dates: start: 20120820, end: 20120826
  4. OLANZAPINE [Suspect]
     Dosage: 5 mg, UNK
     Route: 048
     Dates: start: 20120821, end: 20120826
  5. TEMESTA [Concomitant]
     Dosage: 3.5 mg, UNK
     Dates: start: 201206, end: 20120805
  6. TEMESTA [Concomitant]
     Dosage: 3 mg, UNK
     Dates: start: 20120806, end: 20120809
  7. TEMESTA [Concomitant]
     Dosage: 2.5 mg, UNK
     Dates: start: 20120810, end: 20120812
  8. TEMESTA [Concomitant]
     Dosage: 2 mg, UNK
     Dates: start: 20120813, end: 20120815
  9. TEMESTA [Concomitant]
     Dosage: 1.5 mg, UNK
     Dates: start: 20120816, end: 20120820
  10. TEMESTA [Concomitant]
     Dosage: 1 mg, UNK
     Dates: start: 20120821
  11. EFECTIN ER [Concomitant]
     Dosage: 75 mg, UNK
     Dates: start: 20120711, end: 20120715
  12. EFECTIN ER [Concomitant]
     Dosage: 150 mg, UNK
     Dates: start: 20120716, end: 20120716
  13. EFECTIN ER [Concomitant]
     Dosage: 225 mg, UNK
     Dates: start: 20120718
  14. LYRICA [Concomitant]
     Dosage: 600 mg, UNK
     Dates: start: 201206
  15. SOLIAN [Concomitant]
     Dosage: 400 mg, UNK
     Dates: start: 201206, end: 20120710
  16. MOVICOL                            /01625101/ [Concomitant]
     Dosage: 1 DF, UNK
     Dates: start: 20120711, end: 20120715
  17. MOVICOL                            /01625101/ [Concomitant]
     Dosage: 2 DF, UNK
     Dates: start: 20120716, end: 20120719
  18. MOVICOL                            /01625101/ [Concomitant]
     Dosage: 3 DF, UNK
     Dates: start: 20120720

REACTIONS (3)
  - Hospitalisation [Recovered/Resolved]
  - Leukopenia [Unknown]
  - Weight increased [Not Recovered/Not Resolved]
